FAERS Safety Report 18368452 (Version 2)
Quarter: 2020Q4

REPORT INFORMATION
  Report Type: Spontaneous
  Country: DE (occurrence: DE)
  Receive Date: 20201009
  Receipt Date: 20201024
  Transmission Date: 20210114
  Serious: Yes (Death)
  Sender: FDA-Public Use
  Company Number: DE-ROCHE-2692422

PATIENT
  Age: 68 Year
  Sex: Female
  Weight: 75 kg

DRUGS (5)
  1. RITUXIMAB. [Suspect]
     Active Substance: RITUXIMAB
     Indication: MANTLE CELL LYMPHOMA
     Route: 042
     Dates: start: 201907, end: 201908
  2. AMLODIPINE [Concomitant]
     Active Substance: AMLODIPINE BESYLATE
     Indication: HYPERTENSION
     Route: 048
  3. METOCLOPRAMID [Concomitant]
     Active Substance: METOCLOPRAMIDE
     Route: 048
  4. BENDAMUSTINE [Suspect]
     Active Substance: BENDAMUSTINE
     Indication: MANTLE CELL LYMPHOMA
     Route: 042
     Dates: start: 201907, end: 201908
  5. BISOPROLOL [Concomitant]
     Active Substance: BISOPROLOL
     Indication: HYPERTENSION
     Route: 048

REACTIONS (2)
  - Toxic epidermal necrolysis [Fatal]
  - Multiple organ dysfunction syndrome [Fatal]

NARRATIVE: CASE EVENT DATE: 20190830
